FAERS Safety Report 8766906 (Version 1)
Quarter: 2012Q4

REPORT INFORMATION
  Report Type: 
  Country: SE (occurrence: SE)
  Receive Date: 20120904
  Receipt Date: 20120904
  Transmission Date: 20130627
  Serious: Yes (Other)
  Sender: FDA-Public Use
  Company Number: SE-JNJFOC-20120814963

PATIENT
  Sex: Female

DRUGS (1)
  1. NICORETTE MENTHOLMINT [Suspect]
     Indication: SMOKING CESSATION THERAPY
     Dosage: 4 years ago
     Route: 048

REACTIONS (2)
  - Nicotine dependence [Unknown]
  - Incorrect drug administration duration [Unknown]
